FAERS Safety Report 8539521-9 (Version None)
Quarter: 2012Q3

REPORT INFORMATION
  Report Type: 
  Country: None (occurrence: None)
  Receive Date: 20120726
  Receipt Date: 20120716
  Transmission Date: 20120928
  Serious: Yes (Hospitalization)
  Sender: FDA-Public Use
  Company Number: US-BAYER-2012-072418

PATIENT
  Age: 35 Year
  Sex: Female
  Weight: 117.91 kg

DRUGS (8)
  1. ALBUTEROL [Concomitant]
     Indication: WHEEZING
  2. PERCOCET [Concomitant]
     Dosage: 5-325 MG, EVERY 6 HOURS PRN
     Route: 048
  3. NEURONTIN [Concomitant]
     Dosage: 100 MG, BID
     Route: 048
  4. ZYRTEC [Concomitant]
     Dosage: 1 TABLET DAILY
     Route: 048
  5. ALBUTEROL [Concomitant]
     Indication: DYSPNOEA
     Dosage: EVERY 4-6 HOURS AS NEEDED
  6. ALBUTEROL [Concomitant]
     Indication: COUGH
  7. IBUPROFEN [Concomitant]
     Dosage: 800 MG, BID
     Route: 048
  8. YASMIN [Suspect]

REACTIONS (2)
  - DEEP VEIN THROMBOSIS [None]
  - PULMONARY EMBOLISM [None]
